FAERS Safety Report 9138993 (Version 1)
Quarter: 2013Q1

REPORT INFORMATION
  Report Type: Spontaneous
  Country: US (occurrence: None)
  Receive Date: 20130205
  Receipt Date: 20130205
  Transmission Date: 20140127
  Serious: Yes (Death)
  Sender: FDA-Public Use
  Company Number: VAL_01347_2013

PATIENT
  Age: 98 Year
  Sex: Female

DRUGS (2)
  1. METOPROLOL [Suspect]
     Indication: PRODUCT USED FOR UNKNOWN INDICATION
  2. CARDIAC GLYCOSIDES [Suspect]

REACTIONS (2)
  - Medication error [None]
  - Cardioactive drug level above therapeutic [None]
